FAERS Safety Report 8328722-0 (Version None)
Quarter: 2012Q2

REPORT INFORMATION
  Report Type: 
  Country: None (occurrence: None)
  Receive Date: 20120502
  Receipt Date: 20120424
  Transmission Date: 20120825
  Serious: Yes (Hospitalization)
  Sender: FDA-Public Use
  Company Number: JP-VERTEX PHARMACEUTICALS INC.-AE-2012-002729

PATIENT
  Age: 56 Year
  Sex: Male

DRUGS (10)
  1. RIBAVIRIN [Concomitant]
     Indication: HEPATITIS C
     Route: 048
     Dates: start: 20120209, end: 20120222
  2. NORVASC [Concomitant]
     Route: 048
     Dates: end: 20120222
  3. LOSARTAN POTASSIUM [Concomitant]
     Route: 048
     Dates: end: 20120222
  4. TELAVIC (TELAPREVIR) [Suspect]
     Indication: HEPATITIS C
     Route: 048
     Dates: start: 20120209
  5. PEGINTERFERON ALFA-2B [Concomitant]
     Indication: HEPATITIS C
     Route: 051
     Dates: start: 20120209, end: 20120222
  6. LASIX [Concomitant]
     Route: 048
     Dates: end: 20120222
  7. NOVORAPID [Concomitant]
     Route: 058
     Dates: end: 20120222
  8. ALDACTONE [Concomitant]
     Route: 048
     Dates: end: 20120222
  9. AMARYL [Concomitant]
     Route: 048
     Dates: end: 20120222
  10. TELAVIC (TELAPREVIR) [Suspect]
     Route: 048
     Dates: start: 20120217, end: 20120222

REACTIONS (3)
  - RENAL DISORDER [None]
  - CARDIAC ARREST [None]
  - HYPERKALAEMIA [None]
